FAERS Safety Report 14566280 (Version 1)
Quarter: 2018Q1

REPORT INFORMATION
  Report Type: Spontaneous
  Country: US (occurrence: US)
  Receive Date: 20180223
  Receipt Date: 20180223
  Transmission Date: 20180509
  Serious: No
  Sender: FDA-Public Use
  Company Number: US-PFIZER INC-2018075491

PATIENT
  Age: 70 Year
  Sex: Female

DRUGS (11)
  1. ROSUVASTATIN. [Concomitant]
     Active Substance: ROSUVASTATIN
     Dosage: 10 MG, UNK
  2. XELJANZ XR [Suspect]
     Active Substance: TOFACITINIB CITRATE
     Indication: RHEUMATOID ARTHRITIS
     Dosage: 11 MG, DAILY
     Route: 048
     Dates: start: 201802
  3. AMLODIPINE B [Concomitant]
     Dosage: 10 MG, UNK
  4. AMLODIPINE B [Concomitant]
     Dosage: 5 MG, UNK
  5. MUPIROCIN CA [Concomitant]
     Dosage: UNK
  6. MUPIROCIN. [Concomitant]
     Active Substance: MUPIROCIN
     Dosage: UNK
  7. PREDNISONE. [Concomitant]
     Active Substance: PREDNISONE
     Dosage: 2.5 MG, UNK
  8. BACTRIM DS [Concomitant]
     Active Substance: SULFAMETHOXAZOLE\TRIMETHOPRIM
     Dosage: UNK
  9. ESOMEPRAZOLE CPD [Concomitant]
     Dosage: 40 MG, UNK
  10. RANITIDINE H [Concomitant]
     Dosage: 150 MG, UNK
  11. SPIRIVA HAND [Concomitant]
     Dosage: 18 UG, UNK

REACTIONS (1)
  - Muscle spasms [Not Recovered/Not Resolved]

NARRATIVE: CASE EVENT DATE: 201802
